FAERS Safety Report 22108689 (Version 1)
Quarter: 2023Q1

REPORT INFORMATION
  Report Type: Spontaneous
  Country: CH (occurrence: CH)
  Receive Date: 20230317
  Receipt Date: 20230317
  Transmission Date: 20230418
  Serious: Yes (Other)
  Sender: FDA-Public Use
  Company Number: None

PATIENT

DRUGS (21)
  1. LAMICTAL [Suspect]
     Active Substance: LAMOTRIGINE
     Indication: Product used for unknown indication
     Dosage: 25 MG, QD THE MORNING
     Route: 048
     Dates: start: 202207
  2. LAMICTAL [Suspect]
     Active Substance: LAMOTRIGINE
     Dosage: 50 MG, QD THE EVENING
     Route: 048
     Dates: start: 202207
  3. LAMICTAL [Suspect]
     Active Substance: LAMOTRIGINE
     Dosage: UNK
     Route: 048
     Dates: start: 20220420, end: 202207
  4. MELATONIN [Suspect]
     Active Substance: MELATONIN
     Indication: Product used for unknown indication
     Dosage: 4 MG
     Route: 048
     Dates: start: 20230221
  5. MELATONIN [Suspect]
     Active Substance: MELATONIN
     Dosage: 2 MG
     Route: 048
     Dates: start: 20220929, end: 20230220
  6. REMERON [Suspect]
     Active Substance: MIRTAZAPINE
     Indication: Product used for unknown indication
     Dosage: 15 MG
     Route: 048
     Dates: start: 20230227
  7. REMERON [Suspect]
     Active Substance: MIRTAZAPINE
     Dosage: 15 MG
     Route: 048
     Dates: start: 202207, end: 20220930
  8. REMERON [Suspect]
     Active Substance: MIRTAZAPINE
     Dosage: 30 MG
     Route: 048
     Dates: start: 20221001, end: 20230226
  9. CLOMETHIAZOLE [Suspect]
     Active Substance: CLOMETHIAZOLE
     Indication: Product used for unknown indication
     Dosage: 192 MG 3X/J EN 2E INTENTION ; AS NECESSARY, PRN
     Route: 048
     Dates: start: 20220926
  10. QUETIAPINE [Suspect]
     Active Substance: QUETIAPINE
     Indication: Anxiety
     Dosage: 5 MG, QD
     Route: 048
     Dates: start: 20220802, end: 20221003
  11. QUETIAPINE [Suspect]
     Active Substance: QUETIAPINE
     Dosage: 22.5 MG, QD
     Route: 048
     Dates: start: 20221004, end: 20221018
  12. QUETIAPINE [Suspect]
     Active Substance: QUETIAPINE
     Dosage: MAX 5MG 3X/J ; AS NECESSARY PRN
     Route: 048
     Dates: start: 20221019, end: 20221120
  13. QUETIAPINE [Suspect]
     Active Substance: QUETIAPINE
     Dosage: 12.5 MG, QD
     Route: 048
     Dates: start: 20221121, end: 20230226
  14. QUETIAPINE [Suspect]
     Active Substance: QUETIAPINE
     Dosage: 5 MG, QD
     Route: 048
     Dates: start: 20230227
  15. QUETIAPINE [Suspect]
     Active Substance: QUETIAPINE
     Dosage: 5MG 2X/J ; AS NECESSARY PRN
     Route: 048
     Dates: start: 20230227
  16. CALCIUM\CHOLECALCIFEROL [Concomitant]
     Active Substance: CALCIUM\CHOLECALCIFEROL
     Indication: Product used for unknown indication
     Dosage: UNK
     Route: 048
  17. DAFALGAN [Concomitant]
     Active Substance: ACETAMINOPHEN
     Indication: Pain
     Dosage: UNK UNK,AS NECESSARY
     Route: 048
  18. FIG FRUIT OIL\SORBITOL [Concomitant]
     Active Substance: FIG FRUIT OIL\SORBITOL
     Indication: Product used for unknown indication
     Dosage: UNK
     Route: 048
  19. ENOXAPARIN SODIUM [Concomitant]
     Active Substance: ENOXAPARIN SODIUM
     Indication: Pain
     Dosage: UNK
     Route: 058
  20. SODIUM PICOSULFATE [Concomitant]
     Active Substance: SODIUM PICOSULFATE
     Indication: Product used for unknown indication
     Dosage: UNK UNK, AS NECESSARYPRN
     Route: 048
  21. DICLOFENAC EPOLAMINE [Concomitant]
     Active Substance: DICLOFENAC EPOLAMINE
     Indication: Back pain
     Dosage: UNK UNK, PRN AS NECESSARY
     Route: 062

REACTIONS (2)
  - Somnolence [Not Recovered/Not Resolved]
  - Psychomotor retardation [Not Recovered/Not Resolved]

NARRATIVE: CASE EVENT DATE: 20220901
